FAERS Safety Report 20516070 (Version 1)
Quarter: 2022Q1

REPORT INFORMATION
  Report Type: Report from Study
  Country: IT (occurrence: IT)
  Receive Date: 20220225
  Receipt Date: 20220225
  Transmission Date: 20220423
  Serious: Yes (Hospitalization)
  Sender: FDA-Public Use
  Company Number: IT-JNJFOC-20220244862

PATIENT

DRUGS (2)
  1. INVEGA [Interacting]
     Active Substance: PALIPERIDONE
     Indication: Major depression
     Route: 048
  2. VENLAFAXINE [Concomitant]
     Active Substance: VENLAFAXINE HYDROCHLORIDE

REACTIONS (2)
  - Muscle rigidity [Unknown]
  - Drug interaction [Unknown]
